FAERS Safety Report 9377574 (Version 2)
Quarter: 2013Q3

REPORT INFORMATION
  Report Type: Spontaneous
  Country: US (occurrence: US)
  Receive Date: 20130701
  Receipt Date: 20130821
  Transmission Date: 20140515
  Serious: No
  Sender: FDA-Public Use
  Company Number: US-009507513-1306USA014271

PATIENT
  Sex: Female

DRUGS (2)
  1. CLARITIN REDITABS 12HR [Suspect]
     Indication: SEASONAL ALLERGY
     Dosage: UNK, Q12H
     Route: 048
     Dates: start: 201306, end: 201307
  2. CLARITIN REDITABS 12HR [Suspect]
     Indication: MEDICAL OBSERVATION

REACTIONS (2)
  - Unevaluable event [Unknown]
  - Product blister packaging issue [Unknown]
